FAERS Safety Report 6431942-3 (Version None)
Quarter: 2009Q4

REPORT INFORMATION
  Report Type: 
  Country: None (occurrence: None)
  Receive Date: 20091109
  Receipt Date: 20091029
  Transmission Date: 20100525
  Serious: Yes (Death, Other)
  Sender: FDA-Public Use
  Company Number: US-BIOGENIDEC-203296

PATIENT
  Sex: Male
  Weight: 90 kg

DRUGS (3)
  1. AVONEX [Suspect]
     Indication: MULTIPLE SCLEROSIS
     Route: 030
     Dates: start: 20010809, end: 20020101
  2. AVONEX [Suspect]
     Route: 030
     Dates: end: 20040819
  3. ZOCOR [Concomitant]
     Indication: CARDIAC DISORDER

REACTIONS (4)
  - CHRONIC LYMPHOCYTIC LEUKAEMIA [None]
  - MULTIPLE SCLEROSIS [None]
  - PNEUMONIA [None]
  - PROSTATOMEGALY [None]
